FAERS Safety Report 9686642 (Version 1)
Quarter: 2013Q4

REPORT INFORMATION
  Report Type: Spontaneous
  Country: GR (occurrence: GR)
  Receive Date: 20131113
  Receipt Date: 20131113
  Transmission Date: 20140711
  Serious: Yes (Other)
  Sender: FDA-Public Use
  Company Number: GR-ACORDA-ACO_100216_2013

PATIENT
  Sex: Female

DRUGS (1)
  1. FAMPYRA [Suspect]
     Dosage: 10 MG, BID
     Route: 048

REACTIONS (1)
  - Convulsion [Recovered/Resolved]
